FAERS Safety Report 5165867-0 (Version None)
Quarter: 2006Q4

REPORT INFORMATION
  Report Type: 
  Country: None (occurrence: None)
  Receive Date: 20061128
  Receipt Date: 20061116
  Transmission Date: 20070319
  Serious: Yes (Other)
  Sender: FDA-Public Use
  Company Number: 2006140332

PATIENT
  Age: 3 Year
  Sex: Male
  Weight: 14.5151 kg

DRUGS (2)
  1. BENYLIN DM 12 HOUR SYRUP               (DEXTROMETHORPHAN) [Suspect]
     Indication: COUGH
     Dosage: ONE TEASPOONFUL, ONCE, ORAL
     Route: 048
     Dates: start: 20061113, end: 20061113
  2. DRUG, UNSPECIFIED (DRUG, [Concomitant]

REACTIONS (2)
  - HAEMOPTYSIS [None]
  - INSOMNIA [None]
